FAERS Safety Report 9037172 (Version 1)
Quarter: 2013Q1

REPORT INFORMATION
  Report Type: Spontaneous
  Country: US (occurrence: None)
  Receive Date: 20130115
  Receipt Date: 20130115
  Transmission Date: 20140127
  Serious: Yes (Hospitalization)
  Sender: FDA-Public Use
  Company Number: 9039997-2013-00002

PATIENT
  Age: 62 Year
  Sex: Female

DRUGS (4)
  1. LEVULAN KERASTICK [Suspect]
     Route: 061
     Dates: start: 20121201
  2. CELLCEPT [Concomitant]
  3. PROGRAFT [Concomitant]
  4. ACYCLOVIR [Concomitant]

REACTIONS (1)
  - Blood creatinine increased [None]
